FAERS Safety Report 21360578 (Version 2)
Quarter: 2024Q1

REPORT INFORMATION
  Report Type: Spontaneous
  Country: BG (occurrence: BG)
  Receive Date: 20220921
  Receipt Date: 20240314
  Transmission Date: 20240409
  Serious: Yes (Other)
  Sender: FDA-Public Use
  Company Number: BG-NOVARTISPH-NVSC2022BG208570

PATIENT
  Age: 54 Year
  Sex: Male

DRUGS (12)
  1. CARBOPLATIN [Suspect]
     Active Substance: CARBOPLATIN
     Indication: Lung adenocarcinoma
     Dosage: CYCLIC 5 MG/ML PER MIN
     Route: 065
     Dates: start: 2021, end: 2021
  2. CARBOPLATIN [Suspect]
     Active Substance: CARBOPLATIN
     Indication: Metastases to lymph nodes
     Dosage: DOSED AT AN AREA UNDER THE CURVE (AUC) OF 5 MG/ML PER MINUTE-4 CYCLES
     Route: 065
     Dates: start: 2021, end: 2021
  3. CARBOPLATIN [Suspect]
     Active Substance: CARBOPLATIN
     Indication: Metastases to muscle
  4. CARBOPLATIN [Suspect]
     Active Substance: CARBOPLATIN
     Indication: Metastases to lymph nodes
  5. PEMETREXED [Suspect]
     Active Substance: PEMETREXED
     Indication: Lung adenocarcinoma
     Dosage: 500 MG/M2, CYCLIC
     Route: 065
     Dates: start: 2021, end: 2021
  6. PEMETREXED [Suspect]
     Active Substance: PEMETREXED
     Indication: Metastases to lymph nodes
  7. PEMETREXED [Suspect]
     Active Substance: PEMETREXED
     Indication: Metastases to muscle
  8. PEMBROLIZUMAB [Suspect]
     Active Substance: PEMBROLIZUMAB
     Indication: Lung adenocarcinoma
     Dosage: 200 MG,(FIXED DOSE)
     Route: 065
  9. PEMBROLIZUMAB [Suspect]
     Active Substance: PEMBROLIZUMAB
     Indication: Metastases to lymph nodes
     Dosage: FIXED DOS AT 200 MG EACH CYCLE FOR 4 CYCLES
     Route: 065
     Dates: start: 2021, end: 2021
  10. PEMBROLIZUMAB [Suspect]
     Active Substance: PEMBROLIZUMAB
     Indication: Metastases to muscle
     Dosage: 200 MG
     Route: 065
     Dates: start: 2021, end: 2021
  11. PEMBROLIZUMAB [Suspect]
     Active Substance: PEMBROLIZUMAB
     Indication: Metastases to lymph nodes
  12. PEMBROLIZUMAB [Suspect]
     Active Substance: PEMBROLIZUMAB
     Indication: Metastases to muscle

REACTIONS (7)
  - Idiopathic pulmonary fibrosis [Recovering/Resolving]
  - Concomitant disease progression [Recovering/Resolving]
  - Autoimmune lung disease [Recovering/Resolving]
  - Pruritus allergic [Unknown]
  - Rash [Unknown]
  - Therapy partial responder [Unknown]
  - Product use in unapproved indication [Unknown]

NARRATIVE: CASE EVENT DATE: 20210101
